FAERS Safety Report 13084280 (Version 1)
Quarter: 2017Q1

REPORT INFORMATION
  Report Type: Spontaneous
  Country: US (occurrence: US)
  Receive Date: 20170101
  Receipt Date: 20170101
  Transmission Date: 20170428
  Serious: Yes (Other)
  Sender: FDA-Public Use
  Company Number: None

PATIENT
  Age: 59 Year
  Sex: Male
  Weight: 69.75 kg

DRUGS (4)
  1. MALARONE [Suspect]
     Active Substance: ATOVAQUONE\PROGUANIL HYDROCHLORIDE
     Indication: MALARIA PROPHYLAXIS
     Dosage: ?          QUANTITY:18 TABLET(S);?
     Route: 048
     Dates: start: 20160305, end: 20160322
  2. GINKGO BILOBA [Concomitant]
     Active Substance: GINKGO
  3. MULTIVITAMIN [Concomitant]
     Active Substance: VITAMINS
  4. SAW PALMETTO [Concomitant]
     Active Substance: SAW PALMETTO

REACTIONS (4)
  - Sleep disorder [None]
  - Lethargy [None]
  - Malaise [None]
  - Headache [None]

NARRATIVE: CASE EVENT DATE: 20160322
